FAERS Safety Report 6945173-1 (Version None)
Quarter: 2010Q3

REPORT INFORMATION
  Report Type: 
  Country: None (occurrence: None)
  Receive Date: 20100827
  Receipt Date: 20100505
  Transmission Date: 20110219
  Serious: No
  Sender: FDA-Public Use
  Company Number: US-KINGPHARMUSA00001-K201000550

PATIENT
  Age: 40 Year
  Sex: Female
  Weight: 80.726 kg

DRUGS (8)
  1. FLECTOR [Suspect]
     Indication: MUSCLE SPASMS
     Dosage: 1 PATCH, BID
     Route: 061
     Dates: start: 20100101, end: 20100401
  2. SKELAXIN [Suspect]
     Indication: MUSCLE SPASMS
     Dosage: 400 MG, PRN
     Dates: start: 20100101, end: 20100101
  3. SKELAXIN [Suspect]
     Indication: INJURY
     Dosage: 400 MG, PRN
     Dates: start: 20100503, end: 20100503
  4. PROMETRIUM [Concomitant]
     Indication: HORMONE LEVEL ABNORMAL
     Dosage: 200 MG, QHS TAKEN ON THE FIRST 14 DAYS OF HER CYCLE
  5. PROMETRIUM [Concomitant]
     Indication: PROGESTERONE ABNORMAL
  6. SYNTHROID [Concomitant]
     Indication: THYROIDECTOMY
     Dosage: 0.125 MG, QD
  7. VITAMINS [Concomitant]
     Dosage: UNK
  8. AMITRIPTYLINE HCL [Concomitant]
     Indication: INSOMNIA
     Dosage: 10 MG, QHS TAKEN ON THE SECOND 14 DAYS OF HER CYCLE

REACTIONS (12)
  - ADRENAL DISORDER [None]
  - ANXIETY [None]
  - CHEST DISCOMFORT [None]
  - DIARRHOEA [None]
  - HEADACHE [None]
  - INSOMNIA [None]
  - MUSCLE SPASMS [None]
  - NAUSEA [None]
  - PALPITATIONS [None]
  - POLLAKIURIA [None]
  - RESTLESSNESS [None]
  - TREMOR [None]
